FAERS Safety Report 14586525 (Version 1)
Quarter: 2018Q1

REPORT INFORMATION
  Report Type: Spontaneous
  Country: DE (occurrence: DE)
  Receive Date: 20180301
  Receipt Date: 20180301
  Transmission Date: 20180509
  Serious: Yes (Other)
  Sender: FDA-Public Use
  Company Number: DE-AMGEN-DEUSP2018025552

PATIENT
  Age: 57 Year
  Sex: Female
  Weight: 44 kg

DRUGS (1)
  1. XGEVA [Suspect]
     Active Substance: DENOSUMAB
     Indication: BREAST CANCER
     Dosage: UNK
     Route: 058

REACTIONS (1)
  - Atypical femur fracture [Unknown]

NARRATIVE: CASE EVENT DATE: 20180212
